FAERS Safety Report 21628650 (Version 1)
Quarter: 2022Q4

REPORT INFORMATION
  Report Type: Spontaneous
  Country: None (occurrence: JP)
  Receive Date: 20221122
  Receipt Date: 20221122
  Transmission Date: 20230113
  Serious: Yes (Life-Threatening)
  Sender: FDA-Public Use
  Company Number: JP-Acacia Pharma Limited-2135150

PATIENT
  Age: 51 Year
  Sex: Female
  Weight: 65.5 kg

DRUGS (4)
  1. BYFAVO [Suspect]
     Active Substance: REMIMAZOLAM BESYLATE
     Indication: General anaesthesia
     Route: 042
     Dates: start: 20221102, end: 20221102
  2. FENTANYL CITRATE [Concomitant]
     Active Substance: FENTANYL CITRATE
     Dates: start: 20221102
  3. MORPHINE SULFATE [Concomitant]
     Active Substance: MORPHINE SULFATE
     Dates: start: 20221102
  4. LEVOBUPIVACAINE HYDROCHLORIDE [Concomitant]
     Active Substance: LEVOBUPIVACAINE HYDROCHLORIDE
     Route: 008
     Dates: start: 20221102

REACTIONS (1)
  - Oxygen saturation decreased [Recovered/Resolved]

NARRATIVE: CASE EVENT DATE: 20221102
